FAERS Safety Report 7774058-6 (Version None)
Quarter: 2011Q3

REPORT INFORMATION
  Report Type: 
  Country: None (occurrence: None)
  Receive Date: 20110923
  Receipt Date: 20110920
  Transmission Date: 20111222
  Serious: Yes (Other)
  Sender: FDA-Public Use
  Company Number: US-PFIZER INC-2011223875

PATIENT
  Sex: Female

DRUGS (4)
  1. ALLEGRA D 24 HOUR [Concomitant]
     Dosage: UNK
  2. EFFEXOR XR [Suspect]
     Dosage: 37.5 MG, 1X/DAY
     Route: 048
     Dates: end: 20110904
  3. EFFEXOR XR [Suspect]
     Indication: DEPRESSION
     Dosage: 75 MG, 1X/DAY
     Route: 048
  4. NEXIUM [Concomitant]
     Dosage: UNK

REACTIONS (13)
  - DIZZINESS [None]
  - INFLUENZA LIKE ILLNESS [None]
  - BLOOD CHOLESTEROL INCREASED [None]
  - HOT FLUSH [None]
  - COUGH [None]
  - MEMORY IMPAIRMENT [None]
  - NAUSEA [None]
  - WEIGHT INCREASED [None]
  - HYPERHIDROSIS [None]
  - WITHDRAWAL SYNDROME [None]
  - BLOOD PRESSURE INCREASED [None]
  - MALAISE [None]
  - AFFECT LABILITY [None]
